FAERS Safety Report 8578646 (Version 14)
Quarter: 2014Q1

REPORT INFORMATION
  Report Type: Report from Study
  Country: US (occurrence: US)
  Receive Date: 20120524
  Receipt Date: 20140318
  Transmission Date: 20141002
  Serious: Yes (Other)
  Sender: FDA-Public Use
  Company Number: US-GLAXOSMITHKLINE-A0965921A

PATIENT
  Age: 53 Year
  Sex: Male
  Weight: 71.8 kg

DRUGS (9)
  1. ADVAIR [Suspect]
     Indication: CHRONIC OBSTRUCTIVE PULMONARY DISEASE
     Route: 055
  2. ALBUTEROL [Suspect]
     Indication: CHRONIC OBSTRUCTIVE PULMONARY DISEASE
     Route: 055
  3. ANTIBIOTICS [Suspect]
  4. SMOKELESS CIGARETTE [Suspect]
     Indication: PRODUCT USED FOR UNKNOWN INDICATION
     Route: 048
     Dates: end: 201312
  5. XOPENEX [Concomitant]
     Indication: PRODUCT USED FOR UNKNOWN INDICATION
  6. XANAX [Concomitant]
  7. ROFLUMILAST [Concomitant]
  8. LASIX [Concomitant]
  9. OXYGEN [Concomitant]

REACTIONS (44)
  - Gastric ulcer [Unknown]
  - Cardiac failure congestive [Unknown]
  - Traumatic lung injury [Unknown]
  - Staphylococcal infection [Not Recovered/Not Resolved]
  - Anxiety [Unknown]
  - Fatigue [Unknown]
  - Burnout syndrome [Unknown]
  - Abdominal pain upper [Unknown]
  - Dyspnoea exertional [Unknown]
  - Abdominal distension [Unknown]
  - Diarrhoea [Unknown]
  - Decreased appetite [Unknown]
  - Abdominal hernia [Unknown]
  - Depression [Unknown]
  - Dyspepsia [Unknown]
  - General physical health deterioration [Unknown]
  - Hypersomnia [Not Recovered/Not Resolved]
  - Chronic obstructive pulmonary disease [Not Recovered/Not Resolved]
  - Asthenia [Unknown]
  - Cough [Unknown]
  - Blood pressure fluctuation [Unknown]
  - Oxygen saturation decreased [Not Recovered/Not Resolved]
  - Memory impairment [Unknown]
  - Disturbance in attention [Unknown]
  - Speech disorder [Unknown]
  - Eye infection [Unknown]
  - Eye pain [Unknown]
  - Hordeolum [Unknown]
  - Swelling face [Unknown]
  - Furuncle [Not Recovered/Not Resolved]
  - Cyst [Not Recovered/Not Resolved]
  - Malaise [Not Recovered/Not Resolved]
  - Dyspnoea [Unknown]
  - Ill-defined disorder [Unknown]
  - Pyrexia [Unknown]
  - Bronchitis [Unknown]
  - Productive cough [Unknown]
  - Urinary incontinence [Unknown]
  - Faecal incontinence [Unknown]
  - Performance status decreased [Unknown]
  - Confusional state [Unknown]
  - Liver disorder [Unknown]
  - Gastric disorder [Unknown]
  - Vascular injury [Unknown]
